FAERS Safety Report 5330741-3 (Version None)
Quarter: 2007Q2

REPORT INFORMATION
  Report Type: 
  Country: None (occurrence: None)
  Receive Date: 20070522
  Receipt Date: 20070514
  Transmission Date: 20071010
  Serious: Yes (Hospitalization)
  Sender: FDA-Public Use
  Company Number: PHBS2007SE08160

PATIENT
  Age: 58 Year
  Sex: Male

DRUGS (6)
  1. DIOVAN [Suspect]
     Indication: CARDIAC FAILURE
     Dosage: 80 MG/DAY
     Route: 048
     Dates: start: 20070208, end: 20070301
  2. RELIFEX [Suspect]
     Indication: ANKYLOSING SPONDYLITIS
     Dosage: 500 MG/DAY
     Route: 048
  3. NEXIUM [Concomitant]
  4. LOPERAMIDE HCL [Concomitant]
  5. FURIX [Concomitant]
  6. EMCONCOR [Concomitant]

REACTIONS (9)
  - ANOREXIA [None]
  - BALANCE DISORDER [None]
  - BLOOD CREATININE INCREASED [None]
  - BLOOD POTASSIUM INCREASED [None]
  - BLOOD SODIUM DECREASED [None]
  - DIZZINESS [None]
  - FEELING COLD [None]
  - GENERAL PHYSICAL HEALTH DETERIORATION [None]
  - RENAL FAILURE ACUTE [None]
